FAERS Safety Report 9391102 (Version 2)
Quarter: 2014Q1

REPORT INFORMATION
  Report Type: Report from Study
  Country: IE (occurrence: IE)
  Receive Date: 20130709
  Receipt Date: 20140302
  Transmission Date: 20141002
  Serious: Yes (Hospitalization)
  Sender: FDA-Public Use
  Company Number: IE-US-EMD SERONO, INC.-7220818

PATIENT
  Age: 29 Year
  Sex: 0

DRUGS (3)
  1. REBIF [Suspect]
     Indication: RELAPSING-REMITTING MULTIPLE SCLEROSIS
     Route: 058
     Dates: start: 20030405, end: 20110105
  2. REBIF [Suspect]
     Route: 058
     Dates: start: 20110405, end: 20120402
  3. REBIF [Suspect]
     Route: 058
     Dates: start: 20130610

REACTIONS (2)
  - Multiple sclerosis relapse [Recovering/Resolving]
  - Stress [Unknown]
